FAERS Safety Report 24610034 (Version 3)
Quarter: 2025Q1

REPORT INFORMATION
  Report Type: Spontaneous
  Country: US (occurrence: US)
  Receive Date: 20241112
  Receipt Date: 20250327
  Transmission Date: 20250408
  Serious: No
  Sender: SANOFI AVENTIS
  Company Number: US-SA-2024SA323233

PATIENT
  Age: 62 Year
  Sex: Female

DRUGS (1)
  1. DUPIXENT [Suspect]
     Active Substance: DUPILUMAB
     Indication: Neurodermatitis
     Dosage: 300 MG, QOW
     Route: 058
     Dates: start: 20241001

REACTIONS (11)
  - Injection site pain [Unknown]
  - Sleep disorder [Unknown]
  - Constipation [Unknown]
  - Nervousness [Unknown]
  - Drug screen positive [Unknown]
  - Skin discolouration [Unknown]
  - Skin ulcer [Unknown]
  - Condition aggravated [Unknown]
  - Erythema [Unknown]
  - Rash [Unknown]
  - Arthralgia [Unknown]

NARRATIVE: CASE EVENT DATE: 20240101
